FAERS Safety Report 18152301 (Version 1)
Quarter: 2020Q3

REPORT INFORMATION
  Report Type: Spontaneous
  Country: US (occurrence: US)
  Receive Date: 20200814
  Receipt Date: 20200814
  Transmission Date: 20201103
  Serious: No
  Sender: FDA-Public Use
  Company Number: US-MYLANLABS-2020M1070300

PATIENT
  Sex: Female

DRUGS (1)
  1. SCOPOLAMINE [Suspect]
     Active Substance: SCOPOLAMINE
     Indication: POSTOPERATIVE CARE
     Dosage: UNK
     Route: 062

REACTIONS (2)
  - Adverse drug reaction [Recovered/Resolved]
  - Dysphonia [Not Recovered/Not Resolved]
